FAERS Safety Report 5378091-3 (Version None)
Quarter: 2007Q3

REPORT INFORMATION
  Report Type: 
  Country: None (occurrence: None)
  Receive Date: 20070702
  Receipt Date: 20070702
  Transmission Date: 20080115
  Serious: Yes (Other)
  Sender: FDA-Public Use
  Company Number: None

PATIENT
  Age: 53 Year
  Sex: Female
  Weight: 81.6475 kg

DRUGS (3)
  1. MIRAPEX [Suspect]
     Indication: SLEEP DISORDER
     Dosage: 1 HS P.O.
     Route: 048
  2. ZICAM, NASAL SPRAY [Suspect]
     Indication: NASOPHARYNGITIS
     Dosage: 1 SPRAY EACH NOSTRIL X1 NASAL
     Route: 045
  3. ZICAM, NASAL SPRAY [Suspect]
     Indication: PROPHYLAXIS
     Dosage: 1 SPRAY EACH NOSTRIL X1 NASAL
     Route: 045

REACTIONS (3)
  - GASTRIC DISORDER [None]
  - NAUSEA [None]
  - VOMITING [None]
